FAERS Safety Report 8435696-0 (Version None)
Quarter: 2012Q2

REPORT INFORMATION
  Report Type: 
  Country: None (occurrence: None)
  Receive Date: 20120614
  Receipt Date: 20120608
  Transmission Date: 20120825
  Serious: Yes (Other)
  Sender: FDA-Public Use
  Company Number: FR-BAYER-2012-057737

PATIENT
  Age: 50 Year
  Sex: Female
  Weight: 53 kg

DRUGS (7)
  1. ESTRADIOL VALERATE/DIENOGEST [Suspect]
     Indication: CONTRACEPTION
     Dosage: 1 DF, QD
     Route: 048
     Dates: start: 20120416, end: 20120513
  2. DROSPIRENONE AND ETHINYL ESTRADIOL [Concomitant]
  3. CELEBREX [Concomitant]
     Dosage: 100 MG, BID
     Route: 048
     Dates: start: 20120427, end: 20120430
  4. FENOFIBRATE [Concomitant]
     Dosage: UNK
     Dates: start: 20120401
  5. FERROUS SULFATE TAB [Concomitant]
     Dosage: UNK
     Dates: start: 20120401
  6. MIOREL [Concomitant]
     Dosage: UNK
     Dates: start: 20120427
  7. BROMAZEPAM [Concomitant]

REACTIONS (2)
  - SKIN IRRITATION [None]
  - PRURITUS [None]
